FAERS Safety Report 4773782-7 (Version None)
Quarter: 2005Q3

REPORT INFORMATION
  Report Type: 
  Country: None (occurrence: None)
  Receive Date: 20050920
  Receipt Date: 20050808
  Transmission Date: 20060218
  Serious: Yes (Other)
  Sender: FDA-Public Use
  Company Number: US-MERCK-0508USA01539

PATIENT
  Age: 56 Year
  Sex: Male
  Weight: 108 kg

DRUGS (8)
  1. VIOXX [Suspect]
     Indication: MYALGIA
     Route: 048
     Dates: start: 20010622, end: 20030129
  2. PROZAC [Concomitant]
     Route: 065
  3. NEURONTIN [Concomitant]
     Route: 065
  4. EFFEXOR [Concomitant]
     Route: 065
  5. PROTONIX [Concomitant]
     Route: 065
  6. SULFAMETHOXAZOLE AND TRIMETHOPRIM [Concomitant]
     Route: 065
  7. HYDROCODONE BITARTRATE + ACETAMINOPHEN [Concomitant]
     Route: 065
  8. DICLOXACILLIN [Concomitant]
     Route: 065

REACTIONS (2)
  - CARDIAC DISORDER [None]
  - MYOCARDIAL INFARCTION [None]
